FAERS Safety Report 6760099-4 (Version None)
Quarter: 2010Q2

REPORT INFORMATION
  Report Type: 
  Country: None (occurrence: None)
  Receive Date: 20100608
  Receipt Date: 20100603
  Transmission Date: 20101027
  Serious: Yes (Other)
  Sender: FDA-Public Use
  Company Number: US-BRISTOL-MYERS SQUIBB COMPANY-15078900

PATIENT
  Age: 12 Year
  Sex: Male
  Weight: 85 kg

DRUGS (6)
  1. ABILIFY [Suspect]
     Indication: BIPOLAR DISORDER
  2. ABILIFY [Suspect]
     Indication: MOOD SWINGS
  3. SINGULAIR [Concomitant]
  4. ZOLOFT [Concomitant]
  5. ALBUTEROL [Concomitant]
     Route: 055
  6. SELEGILINE HCL [Concomitant]

REACTIONS (6)
  - EPISTAXIS [None]
  - FEELING ABNORMAL [None]
  - HEADACHE [None]
  - HYPERHIDROSIS [None]
  - MIGRAINE [None]
  - SLEEP APNOEA SYNDROME [None]
